FAERS Safety Report 12918830 (Version 5)
Quarter: 2017Q2

REPORT INFORMATION
  Report Type: Spontaneous
  Country: IT (occurrence: IT)
  Receive Date: 20161108
  Receipt Date: 20170525
  Transmission Date: 20170830
  Serious: Yes (Hospitalization)
  Sender: FDA-Public Use
  Company Number: IT-ROCHE-1850295

PATIENT
  Age: 64 Year
  Sex: Male
  Weight: 94 kg

DRUGS (19)
  1. DEURSIL [Suspect]
     Active Substance: URSODIOL
     Indication: LIVER TRANSPLANT
     Dosage: 20 CAPSULES
     Route: 048
     Dates: start: 20160826, end: 20161018
  2. ATORVASTATIN [Concomitant]
     Active Substance: ATORVASTATIN
     Indication: HYPERCHOLESTEROLAEMIA
     Route: 065
     Dates: start: 20160921
  3. TRAMADOL. [Concomitant]
     Active Substance: TRAMADOL
     Indication: PAIN
     Route: 048
     Dates: start: 20160821, end: 20161016
  4. OMEPRAZOLE. [Concomitant]
     Active Substance: OMEPRAZOLE
     Dosage: 1 TABLET, EVENING
     Route: 065
  5. CARDIOASPIRIN [Suspect]
     Active Substance: ASPIRIN
     Indication: MYOCARDIAL ISCHAEMIA
     Route: 048
     Dates: start: 20160921, end: 20161018
  6. PANTOPRAZOLE [Suspect]
     Active Substance: PANTOPRAZOLE
     Indication: PROPHYLAXIS AGAINST GASTROINTESTINAL ULCER
     Dosage: 14 TABLETS IN AL/OPA/AL/VC BLISTER PACK
     Route: 048
     Dates: start: 20160821, end: 20161018
  7. BASSADO [Suspect]
     Active Substance: DOXYCYCLINE HYCLATE
     Indication: STAPHYLOCOCCAL INFECTION
     Dosage: 10 TABLETS
     Route: 048
     Dates: start: 20161001, end: 20161010
  8. CUBICIN [Suspect]
     Active Substance: DAPTOMYCIN
     Indication: STAPHYLOCOCCAL INFECTION
     Route: 042
     Dates: start: 20160821, end: 20161010
  9. ACYCLOVIR. [Suspect]
     Active Substance: ACYCLOVIR
     Indication: PROPHYLAXIS
     Dosage: 25 X 400 MG TABLETS.
     Route: 048
     Dates: start: 20160904, end: 20161016
  10. DEURSIL [Suspect]
     Active Substance: URSODIOL
     Indication: BILIARY ANASTOMOSIS
  11. DALACIN C [Suspect]
     Active Substance: CLINDAMYCIN PHOSPHATE
     Indication: STAPHYLOCOCCAL INFECTION
     Route: 065
     Dates: start: 20160919, end: 20160925
  12. NADROPARIN CALCIUM [Concomitant]
     Active Substance: NADROPARIN CALCIUM
     Indication: THROMBOSIS PROPHYLAXIS
     Route: 058
     Dates: start: 20160821, end: 20160921
  13. PARACETAMOL [Concomitant]
     Active Substance: ACETAMINOPHEN
     Dosage: MAX 2 TIMES PER DAY FOR THE FIRST 3 DAYS
     Route: 065
  14. TACNI [Suspect]
     Active Substance: TACROLIMUS
     Indication: LIVER TRANSPLANT
     Dosage: 60 CAPSULES, INTERRUPTED ON 27/OCT/2016
     Route: 048
     Dates: start: 20160821
  15. SILODOSIN [Concomitant]
     Active Substance: SILODOSIN
     Indication: BENIGN PROSTATIC HYPERPLASIA
     Route: 048
     Dates: start: 20160921
  16. METHYLPREDNISOLONE. [Concomitant]
     Active Substance: METHYLPREDNISOLONE
     Indication: LIVER TRANSPLANT
     Route: 065
     Dates: start: 20160821, end: 20160928
  17. AMIODARONE [Suspect]
     Active Substance: AMIODARONE
     Indication: ATRIAL FIBRILLATION
     Dosage: 20 TABLETS, INTERRUPTED ON 27/OCT/2016
     Route: 048
     Dates: start: 20160901
  18. FUROSEMIDE. [Concomitant]
     Active Substance: FUROSEMIDE
     Dosage: 1 TABLET  AT 8 AM, MONDAY/WEDNESDAY/FRIDA
     Route: 065
  19. VALCYTE [Suspect]
     Active Substance: VALGANCICLOVIR HYDROCHLORIDE
     Indication: CYTOMEGALOVIRUS INFECTION
     Dosage: 60 TABLETS
     Route: 048
     Dates: start: 20161006, end: 20161018

REACTIONS (10)
  - Stevens-Johnson syndrome [Recovering/Resolving]
  - Product use in unapproved indication [Unknown]
  - Hyponatraemia [Recovering/Resolving]
  - Diastolic hypertension [Not Recovered/Not Resolved]
  - Sialoadenitis [Not Recovered/Not Resolved]
  - Cytomegalovirus infection [Not Recovered/Not Resolved]
  - Generalised oedema [Recovering/Resolving]
  - Diarrhoea [Recovering/Resolving]
  - Anaemia [Recovering/Resolving]
  - Weight increased [Recovering/Resolving]

NARRATIVE: CASE EVENT DATE: 20161016
